FAERS Safety Report 4597046-X (Version None)
Quarter: 2005Q1

REPORT INFORMATION
  Report Type: 
  Country: None (occurrence: None)
  Receive Date: 20050301
  Receipt Date: 20050216
  Transmission Date: 20050727
  Serious: Yes (Hospitalization)
  Sender: FDA-Public Use
  Company Number: 2005032272

PATIENT
  Age: 20 Year
  Sex: Female

DRUGS (5)
  1. DOXORUBICIN HCL [Suspect]
     Indication: LYMPHOMA
     Dosage: 80 MG (UNKNOWN), INTRAVENOUS
     Route: 042
     Dates: start: 20041201, end: 20041201
  2. ETOPOSIDE [Suspect]
     Indication: LYMPHOMA
     Dosage: 250 MG (UNKNOWN), INTRAVENOUS
     Route: 042
     Dates: start: 20041130, end: 20041202
  3. IFOSFAMIDE [Suspect]
     Indication: LYMPHOMA
     Dosage: 2500 MG (UNKNOWN), INTRAVENOUS
     Route: 042
     Dates: start: 20041130, end: 20041202
  4. METHOTREXATE [Suspect]
     Indication: LYMPHOMA
     Dosage: 40 MG (UNKNOWN), INTRAVENOUS
     Route: 042
     Dates: start: 20041202, end: 20041202
  5. MITOGUAZONE (MITOGUAZONE) [Suspect]
     Indication: LYMPHOMA
     Dosage: 850 MG (UNKNOWN), INTRAVENOUS
     Route: 042
     Dates: start: 20041130, end: 20041130

REACTIONS (10)
  - DISEASE RECURRENCE [None]
  - ENCEPHALOPATHY [None]
  - ERYTHEMA [None]
  - INFLAMMATION [None]
  - LYMPHOMA [None]
  - MYOCLONUS [None]
  - OEDEMA PERIPHERAL [None]
  - PAIN [None]
  - PARAESTHESIA [None]
  - PITTING OEDEMA [None]
